FAERS Safety Report 8766191 (Version 1)
Quarter: 2012Q4

REPORT INFORMATION
  Report Type: 
  Country: US (occurrence: US)
  Receive Date: 20120904
  Receipt Date: 20120904
  Transmission Date: 20130627
  Serious: Yes (Hospitalization)
  Sender: FDA-Public Use
  Company Number: US-ARROW-2012-15344

PATIENT
  Age: 55 Year
  Sex: Female

DRUGS (6)
  1. FENTANYL (UNKNOWN) [Suspect]
     Indication: CANCER PAIN
     Dosage: 75 mcg, q1h
     Route: 062
  2. FENTANYL (UNKNOWN) [Suspect]
     Dosage: 50 mcg, q1h
     Route: 023
  3. HYDROCODONE-ACETAMINOPHEN [Suspect]
     Indication: BREAKTHROUGH PAIN
     Dosage: 10 mg, prn; max 6 tablets daily
     Route: 048
  4. MORPHINE SULFATE [Suspect]
     Indication: CANCER PAIN
     Dosage: 40 mg, on Day 2
     Route: 042
  5. KETAMINE [Suspect]
     Indication: CANCER PAIN
     Dosage: 5 - 25 mg Q 6 hrs
     Route: 048
  6. METHADONE [Suspect]
     Indication: CANCER PAIN
     Dosage: 10 mg, bid
     Route: 048

REACTIONS (8)
  - Delirium [Recovered/Resolved]
  - Mental status changes [Recovered/Resolved]
  - Hypercalcaemia [None]
  - Renal failure acute [None]
  - Arthralgia [None]
  - Pain in extremity [None]
  - Agitation [None]
  - Refusal of treatment by patient [None]
